FAERS Safety Report 18144502 (Version 2)
Quarter: 2020Q3

REPORT INFORMATION
  Report Type: Spontaneous
  Country: US (occurrence: US)
  Receive Date: 20200813
  Receipt Date: 20200821
  Transmission Date: 20201103
  Serious: Yes (Other)
  Sender: FDA-Public Use
  Company Number: US-ACCORD-189850

PATIENT
  Age: 66 Year
  Sex: Female
  Weight: 60 kg

DRUGS (3)
  1. DURVALUMAB. [Suspect]
     Active Substance: DURVALUMAB
     Indication: INVASIVE DUCTAL BREAST CARCINOMA
     Dosage: 4 WEEKS
  2. PACLITAXEL/PACLITAXEL LIPOSOME [Suspect]
     Active Substance: PACLITAXEL
     Indication: INVASIVE DUCTAL BREAST CARCINOMA
     Dosage: ONCE WEEKLY
  3. OLAPARIB. [Suspect]
     Active Substance: OLAPARIB
     Indication: INVASIVE DUCTAL BREAST CARCINOMA
     Dosage: TWICE DAILY
     Route: 048

REACTIONS (2)
  - Condition aggravated [Recovered/Resolved]
  - Actinic keratosis [Recovered/Resolved]
